FAERS Safety Report 8922680 (Version 6)
Quarter: 2013Q1

REPORT INFORMATION
  Report Type: Spontaneous
  Country: JP (occurrence: JP)
  Receive Date: 20121125
  Receipt Date: 20130227
  Transmission Date: 20140127
  Serious: Yes (Death)
  Sender: FDA-Public Use
  Company Number: JP-SANOFI-AVENTIS-2012SA086145

PATIENT
  Age: 88 Year
  Sex: Female
  Weight: 53.2 kg

DRUGS (11)
  1. MYSLEE [Suspect]
     Indication: INSOMNIA
     Route: 048
  2. INFLUENZA VACCINE [Suspect]
     Indication: ANTIVIRAL PROPHYLAXIS
     Route: 058
     Dates: start: 20121102, end: 20121102
  3. ROZEREM [Concomitant]
  4. AMLODIPINE BESILATE [Concomitant]
     Indication: HYPERTENSION
  5. PRAVASTATIN SODIUM [Concomitant]
     Indication: HYPERLIPIDAEMIA
     Route: 048
  6. ARICEPT [Concomitant]
     Indication: DEMENTIA
     Dosage: FORM: ORODISPERSIBLE CR TABLET
     Route: 048
  7. PLETAAL [Concomitant]
     Dosage: FORM: ORODISPERSIBLE CR TABLET
     Route: 048
     Dates: end: 20121112
  8. GASMOTIN [Concomitant]
     Route: 048
  9. CONSTAN [Concomitant]
  10. MERISLON [Concomitant]
  11. CEPHADOL [Concomitant]
     Route: 048

REACTIONS (2)
  - Idiopathic thrombocytopenic purpura [Fatal]
  - Intentional drug misuse [Unknown]
